FAERS Safety Report 14795540 (Version 1)
Quarter: 2018Q2

REPORT INFORMATION
  Report Type: Spontaneous
  Country: BR (occurrence: BR)
  Receive Date: 20180423
  Receipt Date: 20180423
  Transmission Date: 20180711
  Serious: Yes (Life-Threatening)
  Sender: FDA-Public Use
  Company Number: PHHY2018BR071551

PATIENT
  Sex: Male

DRUGS (1)
  1. CODATEN [Suspect]
     Active Substance: CODEINE PHOSPHATE\DICLOFENAC SODIUM
     Indication: BACK PAIN
     Dosage: UNK
     Route: 065

REACTIONS (6)
  - Headache [Unknown]
  - Chills [Unknown]
  - Feeling abnormal [Unknown]
  - Adverse reaction [Unknown]
  - Palpitations [Unknown]
  - Syncope [Unknown]
